FAERS Safety Report 8922665 (Version 1)
Quarter: 2012Q4

REPORT INFORMATION
  Report Type: Spontaneous
  Country: US (occurrence: None)
  Receive Date: 20121115
  Receipt Date: 20121115
  Transmission Date: 20130627
  Serious: Yes (Hospitalization)
  Sender: FDA-Public Use
  Company Number: CIO12021919

PATIENT
  Age: 71 Year
  Sex: Female

DRUGS (3)
  1. METAMUCIL [Suspect]
     Indication: BOWEL MOVEMENT IRREGULARITY
     Dosage: 4-5 capsul
     Dates: start: 20121019
  2. LISINOPRIL (LISINOPRIL) [Concomitant]
  3. NORVASC (AMLODIPINE BESILATE ) [Concomitant]

REACTIONS (3)
  - Intestinal obstruction [None]
  - Pyrexia [None]
  - Medication residue [None]
